FAERS Safety Report 4459442-0 (Version None)
Quarter: 2004Q3

REPORT INFORMATION
  Report Type: 
  Country: None (occurrence: None)
  Receive Date: 20040927
  Receipt Date: 20040927
  Transmission Date: 20050211
  Serious: Yes (Hospitalization)
  Sender: FDA-Public Use
  Company Number: None

PATIENT
  Age: 68 Year
  Sex: Female
  Weight: 81.1939 kg

DRUGS (1)
  1. CRESTOR [Suspect]
     Indication: BLOOD CHOLESTEROL INCREASED
     Dosage: 5 OR 10MG A DAY ORAL
     Route: 048

REACTIONS (5)
  - PAIN EXACERBATED [None]
  - PANCREATITIS ACUTE [None]
  - PLEURAL EFFUSION [None]
  - PSEUDOCYST [None]
  - PYREXIA [None]
